FAERS Safety Report 9117804 (Version 2)
Quarter: 2013Q1

REPORT INFORMATION
  Report Type: Spontaneous
  Country: US (occurrence: US)
  Receive Date: 20130225
  Receipt Date: 20130228
  Transmission Date: 20140127
  Serious: No
  Sender: FDA-Public Use
  Company Number: US-009507513-1302USA010275

PATIENT
  Age: 18 Year
  Sex: 0
  Weight: 44.44 kg

DRUGS (1)
  1. IMPLANON [Suspect]
     Indication: CONTRACEPTION
     Dosage: 1 ROD FOR 3 YEARS USE
     Route: 059
     Dates: start: 20120801

REACTIONS (5)
  - Back pain [Unknown]
  - Abdominal pain [Unknown]
  - Mood swings [Unknown]
  - Application site anaesthesia [Unknown]
  - Hypoaesthesia [Unknown]
